FAERS Safety Report 11475352 (Version 1)
Quarter: 2015Q3

REPORT INFORMATION
  Report Type: Spontaneous
  Country: US (occurrence: None)
  Receive Date: 20150908
  Receipt Date: 20150908
  Transmission Date: 20151125
  Serious: Yes (Other)
  Sender: FDA-Public Use
  Company Number: None

PATIENT
  Age: 81 Year
  Sex: Female
  Weight: 76.7 kg

DRUGS (1)
  1. 5-FU [Suspect]
     Active Substance: FLUOROURACIL

REACTIONS (2)
  - Drug dose omission [None]
  - Device malfunction [None]

NARRATIVE: CASE EVENT DATE: 20150710
